FAERS Safety Report 5126185-X (Version None)
Quarter: 2006Q3

REPORT INFORMATION
  Report Type: 
  Country: None (occurrence: None)
  Receive Date: 20060825
  Receipt Date: 20060920
  Transmission Date: 20061208
  Serious: Yes (Other)
  Sender: FDA-Public Use
  Company Number: HQWYE633126SEP05

PATIENT
  Age: 5 Month
  Sex: Male
  Weight: 7.26 kg

DRUGS (1)
  1. CHILDREN'S ADVIL [Suspect]
     Indication: DRUG USE FOR UNKNOWN INDICATION
     Dosage: 1/2 TEASPOON ONCE, ORAL
     Route: 048
     Dates: start: 20050920, end: 20050920

REACTIONS (1)
  - CHOKING [None]
